FAERS Safety Report 7439493-4 (Version None)
Quarter: 2011Q2

REPORT INFORMATION
  Report Type: 
  Country: None (occurrence: None)
  Receive Date: 20110427
  Receipt Date: 20110420
  Transmission Date: 20111010
  Serious: Yes (Death)
  Sender: FDA-Public Use
  Company Number: JP-SANOFI-AVENTIS-2011SA024549

PATIENT
  Age: 62 Year
  Sex: Male
  Weight: 48 kg

DRUGS (5)
  1. APIDRA [Suspect]
     Indication: DIABETES MELLITUS
     Dosage: 28 UNITS (10-10-8)/DAY
     Route: 058
     Dates: start: 20101118, end: 20101209
  2. APIDRA [Suspect]
     Dosage: DOSE:8 UNIT(S)
     Route: 058
     Dates: start: 20101210, end: 20101216
  3. APIDRA [Suspect]
     Dosage: DOSE:7 UNIT(S)
     Route: 058
     Dates: start: 20101217, end: 20110406
  4. LANTUS [Concomitant]
     Indication: DIABETES MELLITUS
     Dosage: DOSE:6 UNIT(S)
     Dates: start: 20101001, end: 20101117
  5. LANTUS [Concomitant]
     Dosage: DOSE:8 UNIT(S)
     Dates: start: 20101118, end: 20110406

REACTIONS (1)
  - DEATH [None]
